FAERS Safety Report 10617405 (Version 1)
Quarter: 2014Q4

REPORT INFORMATION
  Report Type: Spontaneous
  Country: GB (occurrence: GB)
  Receive Date: 20141201
  Receipt Date: 20141201
  Transmission Date: 20150529
  Serious: Yes (Other)
  Sender: FDA-Public Use
  Company Number: GB-009507513-1411GBR013304

PATIENT
  Age: 22 Year
  Sex: Female
  Weight: 70 kg

DRUGS (4)
  1. NEXPLANON [Suspect]
     Active Substance: ETONOGESTREL
     Indication: CONTRACEPTIVE IMPLANT
     Route: 059
     Dates: start: 20130809, end: 20141101
  2. DIFFERIN [Concomitant]
     Active Substance: ADAPALENE
  3. IBUPROFEN LYSINE [Concomitant]
     Active Substance: IBUPROFEN LYSINE
  4. VITAMIN D [Concomitant]
     Active Substance: CHOLECALCIFEROL

REACTIONS (3)
  - Migraine [Not Recovered/Not Resolved]
  - Breast mass [Not Recovered/Not Resolved]
  - Vaginal haemorrhage [Recovered/Resolved]
